FAERS Safety Report 8026772-5 (Version None)
Quarter: 2012Q1

REPORT INFORMATION
  Report Type: 
  Country: None (occurrence: None)
  Receive Date: 20120106
  Receipt Date: 20111229
  Transmission Date: 20120608
  Serious: No
  Sender: FDA-Public Use
  Company Number: US-BIOGENIDEC-2011BI049042

PATIENT
  Age: 49 Year
  Sex: Female

DRUGS (2)
  1. AVONEX [Suspect]
     Indication: MULTIPLE SCLEROSIS
     Route: 030
     Dates: start: 20111229
  2. IBUPROFEN [Concomitant]
     Indication: PREMEDICATION
     Dates: start: 20111229

REACTIONS (3)
  - NAUSEA [None]
  - FEELING COLD [None]
  - HEADACHE [None]
